FAERS Safety Report 9955915 (Version 1)
Quarter: 2014Q1

REPORT INFORMATION
  Report Type: Report from Study
  Country: US (occurrence: US)
  Receive Date: 20140304
  Receipt Date: 20140304
  Transmission Date: 20141002
  Serious: No
  Sender: FDA-Public Use
  Company Number: US-ABBVIE-13P-163-1084106-00

PATIENT
  Age: 62 Year
  Sex: Male

DRUGS (3)
  1. HUMIRA [Suspect]
     Indication: RHEUMATOID ARTHRITIS
     Dates: start: 20130405
  2. PROGENE HERBAL SUPPLEMENT [Concomitant]
     Indication: BLOOD TESTOSTERONE DECREASED
     Dosage: SUPPLEMENT
  3. HERBAL SUPPLEMENT [Concomitant]
     Indication: ROUTINE HEALTH MAINTENANCE
     Dosage: SUPPLEMENT

REACTIONS (1)
  - Blood testosterone decreased [Not Recovered/Not Resolved]
